FAERS Safety Report 23019681 (Version 2)
Quarter: 2024Q1

REPORT INFORMATION
  Report Type: Spontaneous
  Country: JP (occurrence: JP)
  Receive Date: 20231003
  Receipt Date: 20240118
  Transmission Date: 20240410
  Serious: Yes (Death, Other)
  Sender: FDA-Public Use
  Company Number: JP-AMGEN-JPNSP2023171837

PATIENT
  Sex: Male

DRUGS (2)
  1. BLINCYTO [Suspect]
     Active Substance: BLINATUMOMAB
     Indication: B precursor type acute leukaemia
     Dosage: 9 MICROGRAM, IV DRIP INFUSION
     Route: 042
     Dates: start: 20230908, end: 20230915
  2. ICLUSIG [Concomitant]
     Active Substance: PONATINIB
     Dosage: UNK

REACTIONS (2)
  - Cytokine release syndrome [Fatal]
  - Acute lymphocytic leukaemia [Unknown]

NARRATIVE: CASE EVENT DATE: 20230914
